FAERS Safety Report 18270115 (Version 1)
Quarter: 2020Q3

REPORT INFORMATION
  Report Type: Spontaneous
  Country: CA (occurrence: CA)
  Receive Date: 20200916
  Receipt Date: 20200916
  Transmission Date: 20201103
  Serious: Yes (Other)
  Sender: FDA-Public Use
  Company Number: CA-TEVA-2020-CA-1828007

PATIENT
  Age: 25 Year
  Sex: Male

DRUGS (1)
  1. HALOPERIDOL. [Suspect]
     Active Substance: HALOPERIDOL
     Indication: HALLUCINATION, AUDITORY

REACTIONS (4)
  - Torticollis [Unknown]
  - Musculoskeletal stiffness [Unknown]
  - Dystonia [Unknown]
  - Eye movement disorder [Unknown]
